FAERS Safety Report 6005989-5 (Version None)
Quarter: 2008Q4

REPORT INFORMATION
  Report Type: 
  Country: None (occurrence: None)
  Receive Date: 20081217
  Receipt Date: 20081212
  Transmission Date: 20090506
  Serious: Yes (Life-Threatening, Other)
  Sender: FDA-Public Use
  Company Number: PHHY2008BR31901

PATIENT
  Sex: Female
  Weight: 47 kg

DRUGS (3)
  1. ZOLEDRONIC ACID [Suspect]
     Indication: OSTEOPENIA
     Dosage: UNK
     Route: 042
     Dates: start: 20081211
  2. ADEROGYL [Concomitant]
     Dosage: 4 DF, QD
  3. ANTIHYPERTENSIVE DRUGS [Concomitant]
     Indication: HYPERTENSION

REACTIONS (8)
  - ABDOMINAL PAIN [None]
  - ASTHENIA [None]
  - BEDRIDDEN [None]
  - CHILLS [None]
  - HEADACHE [None]
  - INFLAMMATION [None]
  - PAIN [None]
  - PYREXIA [None]
